FAERS Safety Report 8341717-6 (Version None)
Quarter: 2012Q2

REPORT INFORMATION
  Report Type: 
  Country: None (occurrence: None)
  Receive Date: 20120507
  Receipt Date: 20120430
  Transmission Date: 20120825
  Serious: Yes (Other)
  Sender: FDA-Public Use
  Company Number: PHHY2012AU037969

PATIENT
  Sex: Female

DRUGS (1)
  1. ZOLEDRONOC ACID [Suspect]
     Indication: OSTEOPOROTIC FRACTURE
     Dosage: 5 MG, UNK
     Route: 042
     Dates: start: 20100730

REACTIONS (11)
  - EYE PAIN [None]
  - TOOTH INFECTION [None]
  - ERYTHEMA [None]
  - BODY TEMPERATURE INCREASED [None]
  - OROPHARYNGEAL PAIN [None]
  - EAR PAIN [None]
  - LETHARGY [None]
  - POOR DENTAL CONDITION [None]
  - PAIN IN JAW [None]
  - SWELLING FACE [None]
  - CHILLS [None]
